FAERS Safety Report 7390216-7 (Version None)
Quarter: 2011Q2

REPORT INFORMATION
  Report Type: 
  Country: None (occurrence: None)
  Receive Date: 20110401
  Receipt Date: 20110328
  Transmission Date: 20111010
  Serious: Yes (Hospitalization, Other)
  Sender: FDA-Public Use
  Company Number: US-TEVA-266786USA

PATIENT
  Sex: Male

DRUGS (2)
  1. BACTRIM [Concomitant]
  2. CLARAVIS [Suspect]
     Indication: ACNE
     Dates: start: 20100301, end: 20100907

REACTIONS (7)
  - OESOPHAGEAL RUPTURE [None]
  - RECTAL HAEMORRHAGE [None]
  - MELAENA [None]
  - ABDOMINAL PAIN [None]
  - ABDOMINAL MASS [None]
  - CROHN'S DISEASE [None]
  - GASTROINTESTINAL HAEMORRHAGE [None]
